FAERS Safety Report 9267404 (Version 2)
Quarter: 2013Q3

REPORT INFORMATION
  Report Type: Spontaneous
  Country: US (occurrence: US)
  Receive Date: 20130502
  Receipt Date: 20130722
  Transmission Date: 20140515
  Serious: Yes (Other)
  Sender: FDA-Public Use
  Company Number: US-JNJFOC-20130410743

PATIENT
  Age: 28 Year
  Sex: Male
  Weight: 74.84 kg

DRUGS (31)
  1. INVEGA SUSTENNA [Suspect]
     Indication: PSYCHOTIC DISORDER
     Route: 030
     Dates: start: 20130612
  2. INVEGA SUSTENNA [Suspect]
     Indication: PSYCHOTIC DISORDER
     Route: 030
     Dates: start: 20121217
  3. INVEGA SUSTENNA [Suspect]
     Indication: PSYCHOTIC DISORDER
     Route: 030
     Dates: start: 20130214
  4. INVEGA SUSTENNA [Suspect]
     Indication: PSYCHOTIC DISORDER
     Route: 030
     Dates: start: 20130228
  5. INVEGA SUSTENNA [Suspect]
     Indication: PSYCHOTIC DISORDER
     Route: 030
     Dates: start: 20130314
  6. INVEGA SUSTENNA [Suspect]
     Indication: PSYCHOTIC DISORDER
     Route: 030
     Dates: start: 20130319
  7. INVEGA SUSTENNA [Suspect]
     Indication: PSYCHOTIC DISORDER
     Route: 030
     Dates: start: 20130410
  8. INVEGA SUSTENNA [Suspect]
     Indication: PSYCHOTIC DISORDER
     Route: 030
     Dates: start: 20130515
  9. INVEGA SUSTENNA [Suspect]
     Indication: SCHIZOPHRENIA
     Route: 030
     Dates: start: 20130612
  10. INVEGA SUSTENNA [Suspect]
     Indication: SCHIZOPHRENIA
     Route: 030
     Dates: start: 20121217
  11. INVEGA SUSTENNA [Suspect]
     Indication: SCHIZOPHRENIA
     Route: 030
     Dates: start: 20130214
  12. INVEGA SUSTENNA [Suspect]
     Indication: SCHIZOPHRENIA
     Route: 030
     Dates: start: 20130228
  13. INVEGA SUSTENNA [Suspect]
     Indication: SCHIZOPHRENIA
     Route: 030
     Dates: start: 20130314
  14. INVEGA SUSTENNA [Suspect]
     Indication: SCHIZOPHRENIA
     Route: 030
     Dates: start: 20130319
  15. INVEGA SUSTENNA [Suspect]
     Indication: SCHIZOPHRENIA
     Route: 030
     Dates: start: 20130410
  16. INVEGA SUSTENNA [Suspect]
     Indication: SCHIZOPHRENIA
     Route: 030
     Dates: start: 20130515
  17. DEPAKOTE [Concomitant]
     Route: 065
     Dates: start: 20130410
  18. DEPAKOTE [Concomitant]
     Route: 065
     Dates: start: 20130515
  19. DEPAKOTE [Concomitant]
     Route: 065
     Dates: start: 20130314
  20. DEPAKOTE [Concomitant]
     Route: 065
     Dates: start: 20130612
  21. DEPAKOTE [Concomitant]
     Route: 065
     Dates: start: 20130214
  22. DEPAKOTE [Concomitant]
     Route: 065
     Dates: start: 20121217
  23. REMERON [Concomitant]
     Route: 065
     Dates: start: 20130515
  24. REMERON [Concomitant]
     Route: 065
     Dates: start: 20120217
  25. REMERON [Concomitant]
     Route: 065
     Dates: start: 20130214
  26. REMERON [Concomitant]
     Route: 065
     Dates: start: 20130314
  27. REMERON [Concomitant]
     Route: 065
     Dates: start: 20130612
  28. ABILIFY [Concomitant]
     Route: 065
     Dates: start: 20130612
  29. ABILIFY [Concomitant]
     Route: 065
     Dates: start: 20130314
  30. ABILIFY [Concomitant]
     Route: 065
     Dates: start: 20130410
  31. ABILIFY [Concomitant]
     Route: 065
     Dates: start: 20130515

REACTIONS (3)
  - Hyperprolactinaemia [Recovered/Resolved]
  - Hypogonadism [Recovered/Resolved]
  - Inappropriate schedule of drug administration [Unknown]
